FAERS Safety Report 6713805-9 (Version None)
Quarter: 2010Q2

REPORT INFORMATION
  Report Type: 
  Country: None (occurrence: None)
  Receive Date: 20100503
  Receipt Date: 20100419
  Transmission Date: 20101027
  Serious: Yes (Other)
  Sender: FDA-Public Use
  Company Number: 2010048758

PATIENT
  Sex: Male

DRUGS (1)
  1. FRAGMIN [Suspect]
     Dosage: SUBCUTANEOUS
     Route: 058

REACTIONS (1)
  - PANCREATITIS [None]
